FAERS Safety Report 8691461 (Version 4)
Quarter: 2013Q4

REPORT INFORMATION
  Report Type: Spontaneous
  Country: PL (occurrence: PL)
  Receive Date: 20120726
  Receipt Date: 20131105
  Transmission Date: 20140711
  Serious: Yes (Other)
  Sender: FDA-Public Use
  Company Number: PL-MSD-1207POL009212

PATIENT
  Age: 29 Year
  Sex: Male
  Weight: 74 kg

DRUGS (1)
  1. SYCREST [Suspect]
     Indication: DEPRESSIVE DELUSION
     Dosage: 20 MG, QD
     Route: 060
     Dates: start: 201110, end: 201203

REACTIONS (10)
  - Oedema mouth [Recovered/Resolved]
  - Hypoaesthesia oral [Recovered/Resolved]
  - Hypoaesthesia oral [Recovered/Resolved]
  - Vomiting [Recovered/Resolved]
  - Hypoaesthesia oral [Recovered/Resolved]
  - Dysgeusia [Recovered/Resolved]
  - Tongue disorder [Recovered/Resolved]
  - Burning sensation [Recovered/Resolved]
  - Weight increased [Recovered/Resolved]
  - Product taste abnormal [Unknown]
